FAERS Safety Report 9619236 (Version 1)
Quarter: 2013Q4

REPORT INFORMATION
  Report Type: Spontaneous
  Country: US (occurrence: US)
  Receive Date: 20131014
  Receipt Date: 20131014
  Transmission Date: 20140711
  Serious: Yes (Other)
  Sender: FDA-Public Use
  Company Number: US-FRI-1000049937

PATIENT
  Age: 81 Year
  Sex: Male

DRUGS (4)
  1. BYSTOLIC [Suspect]
     Indication: HYPERTENSION
     Dosage: 10 MG
     Dates: start: 2012, end: 2013
  2. BYSTOLIC [Suspect]
     Dosage: 20 MG
     Dates: start: 2013
  3. CIALIS [Suspect]
     Indication: ERECTILE DYSFUNCTION
     Dosage: 5 MG
  4. CIALIS [Suspect]
     Indication: BENIGN PROSTATIC HYPERPLASIA

REACTIONS (2)
  - Blindness transient [Recovered/Resolved]
  - Tremor [Recovered/Resolved]
